FAERS Safety Report 25141125 (Version 1)
Quarter: 2025Q1

REPORT INFORMATION
  Report Type: Spontaneous
  Country: US (occurrence: US)
  Receive Date: 20250331
  Receipt Date: 20250331
  Transmission Date: 20250409
  Serious: No
  Sender: PFIZER
  Company Number: US-PFIZER INC-202400304615

PATIENT
  Age: 65 Year
  Sex: Female

DRUGS (1)
  1. TUKYSA [Suspect]
     Active Substance: TUCATINIB
     Dosage: 300 MG, 2X/DAY
     Route: 048
     Dates: start: 20220722

REACTIONS (4)
  - Cholelithiasis [Unknown]
  - Bladder dilatation [Unknown]
  - Degenerative bone disease [Unknown]
  - Off label use [Unknown]

NARRATIVE: CASE EVENT DATE: 20220722
